FAERS Safety Report 5857790-0 (Version None)
Quarter: 2008Q3

REPORT INFORMATION
  Report Type: 
  Country: None (occurrence: None)
  Receive Date: 20080822
  Receipt Date: 20080813
  Transmission Date: 20090109
  Serious: Yes (Hospitalization, Other)
  Sender: FDA-Public Use
  Company Number: GXKR2008IL07670

PATIENT
  Age: 19 Year
  Sex: Male

DRUGS (2)
  1. WARFARIN SODIUM [Suspect]
     Indication: DEEP VEIN THROMBOSIS
     Dosage: 10 MG,; 2.5 MG, QD; 12.5 MG, QD
  2. HEPARIN [Concomitant]

REACTIONS (10)
  - BLISTER [None]
  - CHEST PAIN [None]
  - HAEMORRHAGE [None]
  - HYPOXIA [None]
  - PRIAPISM [None]
  - PULMONARY EMBOLISM [None]
  - PURPURA [None]
  - RASH [None]
  - SKIN DISCOLOURATION [None]
  - SKIN NECROSIS [None]
